FAERS Safety Report 4932252-3 (Version None)
Quarter: 2006Q1

REPORT INFORMATION
  Report Type: 
  Country: None (occurrence: None)
  Receive Date: 20060228
  Receipt Date: 20060220
  Transmission Date: 20060701
  Serious: Yes (Hospitalization)
  Sender: FDA-Public Use
  Company Number: 2006025316

PATIENT
  Age: 73 Year
  Sex: Male

DRUGS (5)
  1. LYRICA [Suspect]
     Indication: ILL-DEFINED DISORDER
     Dosage: ORAL
     Route: 048
  2. CARBA (CARBAMAZEPINE) [Concomitant]
  3. KREON (PANCREATIN) [Concomitant]
  4. AMLODIPINE [Concomitant]
  5. ACETYLSALICYLIC ACID SRT [Concomitant]

REACTIONS (2)
  - BLINDNESS [None]
  - TEMPORAL ARTERITIS [None]
